FAERS Safety Report 23326918 (Version 2)
Quarter: 2024Q1

REPORT INFORMATION
  Report Type: Spontaneous
  Country: CH (occurrence: CH)
  Receive Date: 20231221
  Receipt Date: 20240223
  Transmission Date: 20240410
  Serious: Yes (Other)
  Sender: FDA-Public Use
  Company Number: CH-002147023-NVSC2023CH269849

PATIENT
  Sex: Male

DRUGS (2)
  1. COSENTYX [Interacting]
     Active Substance: SECUKINUMAB
     Indication: Psoriasis
     Dosage: UNK
     Route: 065
  2. COSENTYX [Interacting]
     Active Substance: SECUKINUMAB
     Indication: Psoriatic arthropathy

REACTIONS (4)
  - Erectile dysfunction [Unknown]
  - Libido decreased [Unknown]
  - Affective disorder [Unknown]
  - Drug interaction [Unknown]
